FAERS Safety Report 18554668 (Version 3)
Quarter: 2021Q1

REPORT INFORMATION
  Report Type: Spontaneous
  Country: US (occurrence: US)
  Receive Date: 20201127
  Receipt Date: 20210217
  Transmission Date: 20210419
  Serious: Yes (Life-Threatening, Hospitalization)
  Sender: FDA-Public Use
  Company Number: US-JNJFOC-20201133276

PATIENT
  Age: 45 Year
  Sex: Female

DRUGS (1)
  1. PARACETAMOL [Suspect]
     Active Substance: ACETAMINOPHEN
     Indication: BACK PAIN
     Route: 048

REACTIONS (6)
  - Hallucinations, mixed [Recovered/Resolved]
  - Acute hepatic failure [Recovered/Resolved]
  - Confusional state [Recovered/Resolved]
  - Acute respiratory failure [Recovered/Resolved]
  - Insomnia [Recovered/Resolved]
  - Overdose [Unknown]
